FAERS Safety Report 8879800 (Version 1)
Quarter: 2012Q4

REPORT INFORMATION
  Report Type: 
  Country: PT (occurrence: PT)
  Receive Date: 20121031
  Receipt Date: 20121031
  Transmission Date: 20130627
  Serious: Yes (Death, Other)
  Sender: FDA-Public Use
  Company Number: PT-WATSON-2012-18462

PATIENT
  Age: 3 Year

DRUGS (3)
  1. CARBOPLATIN [Suspect]
     Indication: BRAIN NEOPLASM
     Dosage: 70 mg, UNK
     Route: 065
  2. CARBOPLATIN [Suspect]
     Indication: IMMUNE TOLERANCE INDUCTION
     Dosage: every 4 weeks for 1 year
     Route: 065
  3. VINCRISTINE [Suspect]
     Indication: BRAIN NEOPLASM
     Route: 065

REACTIONS (2)
  - Anaphylactic reaction [Recovering/Resolving]
  - Hypersensitivity [Recovering/Resolving]
